FAERS Safety Report 6429559-X (Version None)
Quarter: 2009Q4

REPORT INFORMATION
  Report Type: 
  Country: None (occurrence: None)
  Receive Date: 20091103
  Receipt Date: 20091029
  Transmission Date: 20100525
  Serious: Yes (Hospitalization, Other)
  Sender: FDA-Public Use
  Company Number: CERZ-1000891

PATIENT
  Age: 53 Year
  Sex: Male
  Weight: 92.1 kg

DRUGS (10)
  1. CEREZYME [Suspect]
     Indication: GAUCHER'S DISEASE
     Dosage: 25 U/KG, Q2W, INTRAVENOUS; 50 U/KG, Q2W, INTRAVENOUS
     Route: 042
     Dates: end: 20081209
  2. CEREZYME [Suspect]
     Indication: GAUCHER'S DISEASE
     Dosage: 25 U/KG, Q2W, INTRAVENOUS; 50 U/KG, Q2W, INTRAVENOUS
     Route: 042
     Dates: start: 20081209
  3. FOSAMAX [Concomitant]
  4. LOVASTATIN [Concomitant]
  5. METFORMIN HCL [Concomitant]
  6. MULTIVITAMIN [Concomitant]
  7. TOPROL-XL [Concomitant]
  8. ASCORBIC ACID [Concomitant]
  9. AVANDIA [Concomitant]
  10. ACCUPRIL [Concomitant]

REACTIONS (2)
  - OSTEONECROSIS [None]
  - PERIARTHRITIS [None]
